FAERS Safety Report 13687426 (Version 2)
Quarter: 2017Q3

REPORT INFORMATION
  Report Type: Spontaneous
  Country: DE (occurrence: DE)
  Receive Date: 20170624
  Receipt Date: 20170719
  Transmission Date: 20171127
  Serious: Yes (Disabling, Other)
  Sender: FDA-Public Use
  Company Number: DE-TORRENT-00006629

PATIENT
  Age: 46 Year
  Sex: Female

DRUGS (8)
  1. QUETIAPINE. [Suspect]
     Active Substance: QUETIAPINE
  2. AMISULPRIDE [Suspect]
     Active Substance: AMISULPRIDE
  3. VENLAFAXINE [Suspect]
     Active Substance: VENLAFAXINE HYDROCHLORIDE
  4. PIPAMPERONE [Suspect]
     Active Substance: PIPAMPERONE
  5. METOPROLOL. [Concomitant]
     Active Substance: METOPROLOL
  6. RAMIPRIL. [Concomitant]
     Active Substance: RAMIPRIL
  7. SERTRALINE [Suspect]
     Active Substance: SERTRALINE HYDROCHLORIDE
  8. LEVOMEPROMAZINE [Suspect]
     Active Substance: LEVOMEPROMAZINE

REACTIONS (2)
  - Metabolic syndrome [Unknown]
  - Weight increased [Unknown]

NARRATIVE: CASE EVENT DATE: 20140701
